FAERS Safety Report 7683533-4 (Version None)
Quarter: 2011Q3

REPORT INFORMATION
  Report Type: 
  Country: None (occurrence: None)
  Receive Date: 20110815
  Receipt Date: 20110810
  Transmission Date: 20111222
  Serious: Yes (Other)
  Sender: FDA-Public Use
  Company Number: DE-MERCK-1105DEU00046

PATIENT
  Age: 44 Year
  Sex: Male
  Weight: 76 kg

DRUGS (3)
  1. ASPIRIN [Suspect]
     Indication: ACUTE MYOCARDIAL INFARCTION
     Route: 048
     Dates: start: 20090901
  2. CLOPIDOGREL [Suspect]
     Indication: STENT PLACEMENT
     Route: 048
     Dates: start: 20090901, end: 20100101
  3. ZOCOR [Suspect]
     Indication: DYSLIPIDAEMIA
     Route: 048
     Dates: start: 20090901, end: 20100101

REACTIONS (1)
  - HEPATOTOXICITY [None]
